FAERS Safety Report 25178538 (Version 1)
Quarter: 2025Q2

REPORT INFORMATION
  Report Type: Report from Study
  Country: JP (occurrence: JP)
  Receive Date: 20250409
  Receipt Date: 20250409
  Transmission Date: 20250716
  Serious: Yes (Hospitalization, Other)
  Sender: BRISTOL MYERS SQUIBB
  Company Number: JP-ONO-2023JP010727

PATIENT
  Age: 78 Year
  Sex: Male
  Weight: 57.4 kg

DRUGS (6)
  1. OPDIVO [Suspect]
     Active Substance: NIVOLUMAB
     Indication: Transitional cell carcinoma
     Route: 041
     Dates: start: 20221011, end: 20221101
  2. OPDIVO [Suspect]
     Active Substance: NIVOLUMAB
     Route: 041
     Dates: start: 20221115, end: 20221115
  3. OPDIVO [Suspect]
     Active Substance: NIVOLUMAB
     Route: 041
     Dates: start: 20221213, end: 20221213
  4. OPDIVO [Suspect]
     Active Substance: NIVOLUMAB
     Route: 041
     Dates: start: 20230117, end: 20230117
  5. HYDROCORTISONE SODIUM SUCCINATE [Suspect]
     Active Substance: HYDROCORTISONE SODIUM SUCCINATE
     Indication: Adrenal insufficiency
     Dates: start: 20230317
  6. HYDROCORTISONE SODIUM SUCCINATE [Suspect]
     Active Substance: HYDROCORTISONE SODIUM SUCCINATE
     Indication: Hypopituitarism
     Dates: start: 20230316, end: 20230316

REACTIONS (5)
  - Hypopituitarism [Recovered/Resolved]
  - Adrenal insufficiency [Recovering/Resolving]
  - Thyroiditis [Recovering/Resolving]
  - Hypertension [Recovering/Resolving]
  - Transitional cell carcinoma recurrent [Unknown]

NARRATIVE: CASE EVENT DATE: 20230117
